FAERS Safety Report 15440229 (Version 4)
Quarter: 2023Q2

REPORT INFORMATION
  Report Type: Report from Study
  Country: CA (occurrence: CA)
  Receive Date: 20180928
  Receipt Date: 20230407
  Transmission Date: 20230722
  Serious: Yes (Hospitalization, Other)
  Sender: FDA-Public Use
  Company Number: PHHY2017CA179420

PATIENT
  Age: 51 Year
  Sex: Male
  Weight: 120 kg

DRUGS (11)
  1. UNSPECIFIED INGREDIENT [Suspect]
     Active Substance: UNSPECIFIED INGREDIENT
     Indication: Psoriasis
     Dosage: UNK, QMO
     Route: 058
     Dates: start: 20151121, end: 201707
  2. UNSPECIFIED INGREDIENT [Suspect]
     Active Substance: UNSPECIFIED INGREDIENT
     Dosage: UNK
     Route: 058
     Dates: start: 20171201
  3. STELARA [Concomitant]
     Active Substance: USTEKINUMAB
     Indication: Product used for unknown indication
     Dosage: UNK
     Route: 065
     Dates: start: 20170905, end: 20180220
  4. STELARA [Concomitant]
     Active Substance: USTEKINUMAB
     Dosage: 90 MG, QW
     Route: 065
     Dates: start: 20180521, end: 20180625
  5. STELARA [Concomitant]
     Active Substance: USTEKINUMAB
     Dosage: 90 MG, QW
     Route: 065
     Dates: end: 20180702
  6. PROTOPIC [Concomitant]
     Active Substance: TACROLIMUS
     Indication: Product used for unknown indication
     Dosage: UNK
     Route: 065
     Dates: start: 20170905, end: 20170905
  7. BETAMETHASONE [Concomitant]
     Active Substance: BETAMETHASONE
     Indication: Product used for unknown indication
     Dosage: UNK
     Route: 065
     Dates: start: 2012
  8. BETADERM [Concomitant]
     Active Substance: BETAMETHASONE VALERATE
     Indication: Product used for unknown indication
     Dosage: UNK
     Route: 065
     Dates: start: 2014
  9. METHOTREXATE [Concomitant]
     Active Substance: METHOTREXATE
     Indication: Psoriatic arthropathy
     Dosage: 25 MG, QW
     Route: 065
     Dates: start: 20170613, end: 2018
  10. BETAMETHASONE\CALCIPOTRIENE [Concomitant]
     Active Substance: BETAMETHASONE\CALCIPOTRIENE
     Indication: Product used for unknown indication
     Dosage: 1 DOSAGE FORM, QD
     Route: 065
     Dates: start: 20180221, end: 20180702
  11. ENBREL [Concomitant]
     Active Substance: ETANERCEPT
     Indication: Product used for unknown indication
     Route: 065

REACTIONS (11)
  - Colorectal adenoma [Recovered/Resolved]
  - Dysplasia [Recovered/Resolved]
  - Intervertebral disc protrusion [Recovering/Resolving]
  - Psoriatic arthropathy [Not Recovered/Not Resolved]
  - Postoperative abscess [Recovered/Resolved]
  - Vertigo [Recovered/Resolved]
  - Prostatic calcification [Not Recovered/Not Resolved]
  - Procedural pain [Recovered/Resolved]
  - Actinic keratosis [Recovering/Resolving]
  - Gallbladder injury [Recovered/Resolved]
  - Hepatic steatosis [Not Recovered/Not Resolved]

NARRATIVE: CASE EVENT DATE: 20170915
